FAERS Safety Report 13622464 (Version 1)
Quarter: 2017Q2

REPORT INFORMATION
  Report Type: Spontaneous
  Country: US (occurrence: US)
  Receive Date: 20170607
  Receipt Date: 20170607
  Transmission Date: 20170830
  Serious: No
  Sender: FDA-Public Use
  Company Number: US-ROCHE-1015590

PATIENT
  Sex: Female

DRUGS (5)
  1. NORVIR [Concomitant]
     Active Substance: RITONAVIR
     Indication: HIV INFECTION
     Route: 065
  2. INTELENCE [Concomitant]
     Active Substance: ETRAVIRINE
     Indication: HIV INFECTION
     Route: 065
  3. FUZEON [Suspect]
     Active Substance: ENFUVIRTIDE
     Indication: HIV INFECTION
     Route: 058
  4. PREZISTA [Concomitant]
     Active Substance: DARUNAVIR ETHANOLATE
     Indication: HIV INFECTION
     Route: 065
  5. ISENTRESS [Concomitant]
     Active Substance: RALTEGRAVIR POTASSIUM
     Indication: HIV INFECTION
     Route: 065

REACTIONS (1)
  - Injection site reaction [Unknown]
